FAERS Safety Report 8169835-6 (Version None)
Quarter: 2012Q1

REPORT INFORMATION
  Report Type: 
  Country: None (occurrence: None)
  Receive Date: 20120104
  Receipt Date: 20111130
  Transmission Date: 20120608
  Serious: No
  Sender: FDA-Public Use
  Company Number: 2011HGS-002881

PATIENT
  Age: 57 Year
  Sex: Female
  Weight: 90.7194 kg

DRUGS (14)
  1. ACTOS [Concomitant]
  2. ZOFRAN [Concomitant]
  3. BENLYSTA [Suspect]
     Indication: SYSTEMIC LUPUS ERYTHEMATOSUS
     Dosage: 1 IN 28 D, INTRAVENOUS DRIP
     Route: 041
     Dates: start: 20110701
  4. PREDNISONE TAB [Concomitant]
  5. LOSARTAN POTASSIUM [Concomitant]
  6. TEKTURNA (ANTIHYPERTENSIVES) [Concomitant]
  7. ZOMIG [Concomitant]
  8. TRILIPIX (FENOFIBRATE) [Concomitant]
  9. AMITRIPTYLINE HCL [Concomitant]
  10. NEXIUM [Concomitant]
  11. METOPROLOL XL (METOPROLOL) [Concomitant]
  12. JANUVIA [Concomitant]
  13. CELLCEPT [Concomitant]
  14. FORTICAL (CALCITONIN) [Concomitant]

REACTIONS (4)
  - INFUSION SITE PAIN [None]
  - INFUSION SITE HAEMATOMA [None]
  - MIGRAINE [None]
  - NAUSEA [None]
